FAERS Safety Report 9605198 (Version 3)
Quarter: 2013Q4

REPORT INFORMATION
  Report Type: Spontaneous
  Country: US (occurrence: US)
  Receive Date: 20131008
  Receipt Date: 20131024
  Transmission Date: 20140711
  Serious: Yes (Life-Threatening, Hospitalization, Other)
  Sender: FDA-Public Use
  Company Number: US-009507513-1310USA000466

PATIENT
  Age: 84 Year
  Sex: Female

DRUGS (7)
  1. ZETIA [Suspect]
     Indication: TYPE I HYPERLIPIDAEMIA
     Dosage: 10 MG, QD
     Route: 048
     Dates: start: 20130902, end: 20130909
  2. ZOCOR [Suspect]
     Route: 048
  3. COUMADIN [Concomitant]
     Indication: ATRIAL FIBRILLATION
     Dosage: 5 MG, QD
     Dates: start: 2010
  4. FUROSEMIDE [Concomitant]
     Route: 048
  5. K-DUR [Concomitant]
     Route: 048
  6. AMLODIPINE [Concomitant]
  7. METOPROLOL [Concomitant]

REACTIONS (5)
  - Diverticulitis [Recovering/Resolving]
  - Soft tissue haemorrhage [Recovering/Resolving]
  - Pain [Recovering/Resolving]
  - Ecchymosis [Recovering/Resolving]
  - International normalised ratio increased [Recovering/Resolving]
